FAERS Safety Report 6306812-1 (Version None)
Quarter: 2009Q3

REPORT INFORMATION
  Report Type: 
  Country: None (occurrence: None)
  Receive Date: 20090811
  Receipt Date: 20090811
  Transmission Date: 20100115
  Serious: No
  Sender: FDA-Public Use
  Company Number: None

PATIENT
  Sex: Female
  Weight: 97.0698 kg

DRUGS (1)
  1. WELLBUTRIN [Suspect]
     Indication: DEPRESSION
     Dosage: D

REACTIONS (3)
  - DIZZINESS [None]
  - NO THERAPEUTIC RESPONSE [None]
  - PRODUCT SUBSTITUTION ISSUE [None]
